FAERS Safety Report 5257325-X (Version None)
Quarter: 2007Q1

REPORT INFORMATION
  Report Type: 
  Country: None (occurrence: None)
  Receive Date: 20061214
  Receipt Date: 20061027
  Transmission Date: 20070707
  Serious: Yes (Other)
  Sender: FDA-Public Use
  Company Number: 31709

PATIENT
  Age: 35 Year
  Sex: Male
  Weight: 79.3795 kg

DRUGS (1)
  1. BUPRENORPHINE HCL [Suspect]
     Indication: PAIN

REACTIONS (1)
  - INJECTION SITE REACTION [None]
